FAERS Safety Report 5710395-4 (Version None)
Quarter: 2008Q2

REPORT INFORMATION
  Report Type: 
  Country: None (occurrence: None)
  Receive Date: 20080418
  Receipt Date: 20080415
  Transmission Date: 20081010
  Serious: Yes (Disabling)
  Sender: FDA-Public Use
  Company Number: US-MERCK-0804USA03286

PATIENT
  Age: 57 Year
  Sex: Female

DRUGS (4)
  1. HYZAAR [Suspect]
     Indication: HYPERTENSION
     Route: 048
     Dates: start: 19980101, end: 20071001
  2. HYZAAR [Suspect]
     Route: 048
     Dates: start: 20071001, end: 20080415
  3. SYNTHROID [Concomitant]
     Route: 065
  4. VOLTAREN [Concomitant]
     Route: 065

REACTIONS (3)
  - COUGH [None]
  - RASH PRURITIC [None]
  - RASH VESICULAR [None]
